FAERS Safety Report 9408164 (Version 1)
Quarter: 2013Q3

REPORT INFORMATION
  Report Type: Report from Study
  Country: US (occurrence: US)
  Receive Date: 20130718
  Receipt Date: 20130718
  Transmission Date: 20140515
  Serious: Yes (Other)
  Sender: FDA-Public Use
  Company Number: US-JNJFOC-20130706911

PATIENT
  Sex: 0

DRUGS (1)
  1. STELARA [Suspect]
     Indication: PAIN IN EXTREMITY
     Route: 058

REACTIONS (2)
  - Psoriasis [Unknown]
  - Off label use [Unknown]
